FAERS Safety Report 18106913 (Version 1)
Quarter: 2020Q3

REPORT INFORMATION
  Report Type: Spontaneous
  Country: FR (occurrence: FR)
  Receive Date: 20200803
  Receipt Date: 20200803
  Transmission Date: 20201103
  Serious: Yes (Other)
  Sender: FDA-Public Use
  Company Number: FR-PFIZER INC-2020288620

PATIENT
  Sex: Female

DRUGS (10)
  1. GABAPENTIN. [Suspect]
     Active Substance: GABAPENTIN
     Dosage: 3 DF, UNK
     Route: 048
     Dates: start: 19960116
  2. GABAPENTIN. [Suspect]
     Active Substance: GABAPENTIN
     Dosage: 3 DF (STRENGTH 400 MG), UNK
     Route: 048
     Dates: start: 1997
  3. GABAPENTIN. [Suspect]
     Active Substance: GABAPENTIN
     Indication: EPILEPSY
     Dosage: 400 MG, 1 TABLET IN THE EVENING
     Route: 048
     Dates: end: 200803
  4. DEPAKINE CHRONO [Suspect]
     Active Substance: VALPROATE SODIUM
     Dosage: 3 DF, 1X/DAY
     Route: 048
  5. DEPAKINE CHRONO [Suspect]
     Active Substance: VALPROATE SODIUM
     Dosage: 3 DF, 1X/DAY (STRENGTH 500 MG)
     Route: 048
     Dates: start: 1997, end: 201601
  6. DEPAKINE CHRONO [Suspect]
     Active Substance: VALPROATE SODIUM
     Dosage: 1.5 G, UNK
     Route: 048
     Dates: start: 19951027
  7. DEPAKINE CHRONO [Suspect]
     Active Substance: VALPROATE SODIUM
     Dosage: 1000 MG, 1X/DAY
     Dates: start: 201601
  8. GABAPENTIN. [Suspect]
     Active Substance: GABAPENTIN
     Dosage: 900 MG, UNK
     Route: 048
  9. DEPAKINE CHRONO [Suspect]
     Active Substance: VALPROATE SODIUM
     Indication: EPILEPSY
     Dosage: 2 DF, 1X/DAY (STRENGTH 500 MG )
     Route: 048
     Dates: start: 199411
  10. DEPAKINE CHRONO [Suspect]
     Active Substance: VALPROATE SODIUM
     Dosage: 750MG  EVERY 12 H, MORNING AND EVENING
     Route: 048
     Dates: start: 19950224

REACTIONS (8)
  - Speech disorder [Unknown]
  - Headache [Recovered/Resolved]
  - Malaise [Unknown]
  - Epilepsy [Unknown]
  - Disturbance in attention [Recovered/Resolved]
  - Fatigue [Unknown]
  - Loss of consciousness [Unknown]
  - Exposure during pregnancy [Unknown]

NARRATIVE: CASE EVENT DATE: 199502
